FAERS Safety Report 6611564-1 (Version None)
Quarter: 2010Q1

REPORT INFORMATION
  Report Type: 
  Country: None (occurrence: None)
  Receive Date: 20100303
  Receipt Date: 20100225
  Transmission Date: 20100710
  Serious: Yes (Other)
  Sender: FDA-Public Use
  Company Number: PHEH2008US01026

PATIENT

DRUGS (18)
  1. ELIDEL [Suspect]
     Indication: ECZEMA
     Route: 061
     Dates: start: 20030101
  2. TACROLIMUS [Concomitant]
  3. SERTRALINE HCL [Concomitant]
     Route: 048
  4. INFLUENZA VACCINE [Concomitant]
  5. CHEMOTHERAPEUTICS NOS [Concomitant]
  6. RADIATION THERAPY [Concomitant]
     Dosage: UNK
     Dates: start: 20050913, end: 20051101
  7. TRIAMCINOLONE [Concomitant]
  8. TYLENOL W/ CODEINE NO. 3 [Concomitant]
  9. IBUPROFEN [Concomitant]
  10. CLOBETASOL PROPIONATE [Concomitant]
  11. FLUOCINONIDE [Concomitant]
  12. DOXEPIN HCL [Concomitant]
  13. RABEPRAZOLE SODIUM [Concomitant]
  14. FEXOFENADINE [Concomitant]
  15. HYDROCORTISONE CREAM (B.P.C.,B.N.F.) [Concomitant]
  16. HYDROCODONE BITARTRATE AND ACETAMINOPHEN [Concomitant]
  17. NAPROXEN [Concomitant]
  18. OLOPATADINE [Concomitant]

REACTIONS (2)
  - BIOPSY LYMPH GLAND [None]
  - HODGKIN'S DISEASE [None]
